FAERS Safety Report 18099668 (Version 1)
Quarter: 2020Q3

REPORT INFORMATION
  Report Type: Spontaneous
  Country: US (occurrence: US)
  Receive Date: 20200731
  Receipt Date: 20200731
  Transmission Date: 20201103
  Serious: No
  Sender: FDA-Public Use
  Company Number: US-009507513-2007USA010254

PATIENT
  Age: 31 Year
  Sex: Female
  Weight: 110.2 kg

DRUGS (2)
  1. NEXPLANON [Suspect]
     Active Substance: ETONOGESTREL
     Indication: CONTRACEPTION
     Dosage: 1 ROD EVERY 3 YEARS, DOMINANT ARM
     Route: 059
     Dates: start: 20200317
  2. NEXPLANON [Suspect]
     Active Substance: ETONOGESTREL
     Indication: CONTRACEPTION
     Dosage: 1 ROD EVERY 3 YEARS, LEFT/NON?DOMINANT ARM
     Route: 059
     Dates: start: 20200224, end: 20200317

REACTIONS (5)
  - Device deployment issue [Recovered/Resolved]
  - Product quality issue [Unknown]
  - Implant site injury [Unknown]
  - Device expulsion [Recovered/Resolved]
  - Wrong technique in device usage process [Unknown]

NARRATIVE: CASE EVENT DATE: 2020
